FAERS Safety Report 6076661-0 (Version None)
Quarter: 2009Q1

REPORT INFORMATION
  Report Type: 
  Country: None (occurrence: None)
  Receive Date: 20090213
  Receipt Date: 20090202
  Transmission Date: 20090719
  Serious: Yes (Hospitalization)
  Sender: FDA-Public Use
  Company Number: PHHY2009JP04204

PATIENT
  Age: 66 Year
  Sex: Female

DRUGS (11)
  1. VOLTAREN [Suspect]
     Indication: MOUTH ULCERATION
     Dosage: 200 MG
     Route: 054
     Dates: start: 20060301, end: 20060601
  2. VOLTAREN [Suspect]
     Dosage: 200 MG
     Route: 054
     Dates: start: 20060601, end: 20060601
  3. LEVOTHYROXINE SODIUM [Concomitant]
     Route: 048
  4. FUROSE (FUROSEDON) [Concomitant]
     Route: 065
  5. SPIRONOLACTONE [Concomitant]
     Route: 048
  6. DACTINOMYCIN [Concomitant]
     Route: 042
  7. REBAMIPIDE [Concomitant]
     Route: 048
  8. TROXIPIDE [Concomitant]
     Route: 048
  9. FAMOTIDINE [Concomitant]
     Route: 048
  10. SENNOSIDE [Concomitant]
     Route: 048
  11. LACTULOSE [Concomitant]
     Route: 048

REACTIONS (4)
  - HEPATIC FUNCTION ABNORMAL [None]
  - HYPERAMMONAEMIA [None]
  - MOUTH ULCERATION [None]
  - RENAL IMPAIRMENT [None]
